FAERS Safety Report 16439566 (Version 2)
Quarter: 2020Q4

REPORT INFORMATION
  Report Type: Spontaneous
  Country: US (occurrence: US)
  Receive Date: 20190617
  Receipt Date: 20201106
  Transmission Date: 20210113
  Serious: No
  Sender: FDA-Public Use
  Company Number: US-PFIZER INC-2019255869

PATIENT
  Age: 56 Year
  Sex: Female
  Weight: 113 kg

DRUGS (16)
  1. PAXIL [Suspect]
     Active Substance: PAROXETINE HYDROCHLORIDE
     Indication: PAIN
     Dosage: UNK
  2. EFFEXOR XR [Suspect]
     Active Substance: VENLAFAXINE HYDROCHLORIDE
     Indication: ANXIETY
  3. CELEXA [Suspect]
     Active Substance: CITALOPRAM HYDROBROMIDE
     Indication: PAIN
     Dosage: UNK, DAILY (UP TO 80 MG DAILY)
  4. DESVENLAFAXINE SUCCINATE MONOHYDRATE [Suspect]
     Active Substance: DESVENLAFAXINE SUCCINATE
     Indication: PAIN
     Dosage: UNK
  5. PAROXETINE. [Suspect]
     Active Substance: PAROXETINE
     Dosage: UNK
  6. CELEXA [Suspect]
     Active Substance: CITALOPRAM HYDROBROMIDE
     Indication: STRESS
  7. DESVENLAFAXINE SUCCINATE MONOHYDRATE [Suspect]
     Active Substance: DESVENLAFAXINE SUCCINATE
     Indication: ANXIETY
  8. EFFEXOR XR [Suspect]
     Active Substance: VENLAFAXINE HYDROCHLORIDE
     Indication: STRESS
  9. VENLAFAXINE HCL [Suspect]
     Active Substance: VENLAFAXINE HYDROCHLORIDE
     Dosage: UNK
  10. CELEXA [Suspect]
     Active Substance: CITALOPRAM HYDROBROMIDE
     Indication: ANXIETY
  11. PAXIL [Suspect]
     Active Substance: PAROXETINE HYDROCHLORIDE
     Indication: ANXIETY
  12. DESVENLAFAXINE SUCCINATE MONOHYDRATE [Suspect]
     Active Substance: DESVENLAFAXINE SUCCINATE
     Indication: STRESS
  13. EFFEXOR XR [Suspect]
     Active Substance: VENLAFAXINE HYDROCHLORIDE
     Indication: PAIN
     Dosage: UNK
  14. CITALOPRAM [Suspect]
     Active Substance: CITALOPRAM HYDROBROMIDE
     Dosage: UNK
  15. XANAX [Suspect]
     Active Substance: ALPRAZOLAM
     Dosage: UNK
  16. PAXIL [Suspect]
     Active Substance: PAROXETINE HYDROCHLORIDE
     Indication: STRESS

REACTIONS (1)
  - Drug ineffective [Not Recovered/Not Resolved]
